FAERS Safety Report 7388329-9 (Version None)
Quarter: 2011Q1

REPORT INFORMATION
  Report Type: 
  Country: None (occurrence: None)
  Receive Date: 20110324
  Receipt Date: 20110310
  Transmission Date: 20110831
  Serious: Yes (Hospitalization, Other)
  Sender: FDA-Public Use
  Company Number: BVT-000692

PATIENT
  Age: 12 Year
  Sex: Female

DRUGS (12)
  1. ORAMORPH (MORPHINE) (10 MILLIGRAM) [Concomitant]
  2. FLIXICAL (CALCIUM CARBONATE) [Concomitant]
  3. NORMACOL (ENEMA) [Concomitant]
  4. KINERET [Suspect]
     Indication: JUVENILE ARTHRITIS
     Dosage: 50 MG (50 MG,1 IN 1 D) SUBCUTANEOUS ; 50 MG (50 MG,1 IN 1 D) SUBCUTANEOUS
     Route: 058
     Dates: start: 20100510, end: 20100607
  5. KINERET [Suspect]
     Indication: JUVENILE ARTHRITIS
     Dosage: 50 MG (50 MG,1 IN 1 D) SUBCUTANEOUS ; 50 MG (50 MG,1 IN 1 D) SUBCUTANEOUS
     Route: 058
     Dates: start: 20041101, end: 20100414
  6. FRAGMINE (INJECTION) [Concomitant]
  7. REFRESH EYE DROPS (TETRYZOLINE HYDROCHLORIDE) (EYE DROPS) [Concomitant]
  8. FORLAX [Concomitant]
  9. GENOTROPIN [Concomitant]
  10. LANSOYL (PARAFFIN, LIQUID) [Concomitant]
  11. PREDNISOLONE [Concomitant]
  12. INEXIUM (ESOMEPRAZOL) (TABLETS) [Concomitant]

REACTIONS (9)
  - HISTIOCYTOSIS HAEMATOPHAGIC [None]
  - HEADACHE [None]
  - CYTOLYTIC HEPATITIS [None]
  - CHOLESTASIS [None]
  - PYREXIA [None]
  - MICROCYTIC ANAEMIA [None]
  - HEPATITIS [None]
  - MUSCULOSKELETAL PAIN [None]
  - HEPATOMEGALY [None]
